FAERS Safety Report 4367294-2 (Version None)
Quarter: 2004Q2

REPORT INFORMATION
  Report Type: 
  Country: None (occurrence: None)
  Receive Date: 20040601
  Receipt Date: 20031125
  Transmission Date: 20050107
  Serious: Yes (Life-Threatening, Hospitalization, Other)
  Sender: FDA-Public Use
  Company Number: PHRM2003FR03154

PATIENT
  Age: 55 Year
  Sex: Male
  Weight: 57 kg

DRUGS (6)
  1. LAMISIL [Suspect]
     Indication: DERMATOPHYTOSIS
     Dosage: 250 MG, QD
     Route: 048
     Dates: start: 20030305, end: 20030328
  2. ZYRTEC [Suspect]
     Indication: PRURITUS
     Dosage: 10 MG, QD
     Route: 048
     Dates: start: 20030305, end: 20030404
  3. MYCOLOG [Concomitant]
     Indication: DERMATOPHYTOSIS
     Route: 061
     Dates: start: 20030305, end: 20030321
  4. DIPROSONE [Concomitant]
     Indication: DERMATOPHYTOSIS
     Route: 061
     Dates: start: 20030314, end: 20030321
  5. MYCOSTER [Concomitant]
     Indication: DERMATOPHYTOSIS
     Route: 061
     Dates: start: 20030305, end: 20030321
  6. LOCOID [Concomitant]
     Indication: DERMATOPHYTOSIS
     Route: 061
     Dates: start: 20030305, end: 20030311

REACTIONS (25)
  - ALOPECIA [None]
  - CUTANEOUS LUPUS ERYTHEMATOSUS [None]
  - DEEP VEIN THROMBOSIS [None]
  - DERMATITIS BULLOUS [None]
  - HYPOALBUMINAEMIA [None]
  - HYPOCALCAEMIA [None]
  - HYPOCALCIURIA [None]
  - HYPONATRAEMIA [None]
  - IMPETIGO [None]
  - LEUKOPENIA [None]
  - LYMPHOPENIA [None]
  - NECROSIS [None]
  - NIKOLSKY'S SIGN [None]
  - OEDEMA PERIPHERAL [None]
  - PAIN IN EXTREMITY [None]
  - PYREXIA [None]
  - RALES [None]
  - RHONCHI [None]
  - SKIN DISORDER [None]
  - SKIN LESION [None]
  - TONGUE DISORDER [None]
  - TOXIC EPIDERMAL NECROLYSIS [None]
  - URINE CALCIUM DECREASED [None]
  - URINE SODIUM DECREASED [None]
  - VENOUS THROMBOSIS LIMB [None]
